FAERS Safety Report 6249087-4 (Version None)
Quarter: 2009Q2

REPORT INFORMATION
  Report Type: 
  Country: None (occurrence: None)
  Receive Date: 20090624
  Receipt Date: 20090624
  Transmission Date: 20091009
  Serious: Yes (Other)
  Sender: FDA-Public Use
  Company Number: None

PATIENT
  Age: 51 Year
  Sex: Female
  Weight: 103.4201 kg

DRUGS (1)
  1. PROAIR HFA [Suspect]
     Indication: ASTHMA
     Dosage: 90 MCG 1-2 PUFFS Q 4 HRS PO ONE DOSE
     Route: 048
     Dates: start: 20090622, end: 20090622

REACTIONS (1)
  - TINNITUS [None]
